FAERS Safety Report 6998893-7 (Version None)
Quarter: 2010Q3

REPORT INFORMATION
  Report Type: 
  Country: None (occurrence: None)
  Receive Date: 20100920
  Receipt Date: 20100428
  Transmission Date: 20110219
  Serious: Yes (Other)
  Sender: FDA-Public Use
  Company Number: US-ASTRAZENECA-2010SE19132

PATIENT
  Age: 10770 Day
  Sex: Male
  Weight: 113.4 kg

DRUGS (3)
  1. SEROQUEL XR [Suspect]
     Indication: BIPOLAR DISORDER
     Route: 048
  2. LAMICTAL [Concomitant]
     Route: 048
  3. PRESTIQUE [Concomitant]
     Route: 048

REACTIONS (2)
  - TARDIVE DYSKINESIA [None]
  - TREATMENT NONCOMPLIANCE [None]
